FAERS Safety Report 7590317-4 (Version None)
Quarter: 2011Q3

REPORT INFORMATION
  Report Type: 
  Country: None (occurrence: None)
  Receive Date: 20110705
  Receipt Date: 20110624
  Transmission Date: 20111222
  Serious: Yes (Death, Hospitalization)
  Sender: FDA-Public Use
  Company Number: MX-SANOFI-AVENTIS-2011SA040519

PATIENT
  Age: 79 Year
  Sex: Female

DRUGS (5)
  1. INSULIN GLARGINE [Suspect]
     Indication: TYPE 2 DIABETES MELLITUS
     Route: 058
     Dates: start: 20090101, end: 20110101
  2. INSULIN [Concomitant]
     Route: 058
     Dates: start: 20090101, end: 20110101
  3. DIGOXIN [Concomitant]
     Route: 048
     Dates: start: 20070101, end: 20110101
  4. COUMADIN [Concomitant]
     Route: 048
     Dates: start: 19890101, end: 20110101
  5. ACARBOSE [Concomitant]
     Route: 048
     Dates: start: 20090101, end: 20110101

REACTIONS (4)
  - PULMONARY OEDEMA [None]
  - CARDIAC FAILURE [None]
  - HYPERGLYCAEMIA [None]
  - HYPOGLYCAEMIA [None]
